FAERS Safety Report 15495741 (Version 1)
Quarter: 2018Q4

REPORT INFORMATION
  Report Type: Report from Study
  Country: BR (occurrence: BR)
  Receive Date: 20181013
  Receipt Date: 20181013
  Transmission Date: 20190205
  Serious: Yes (Other)
  Sender: FDA-Public Use
  Company Number: PHHY2018BR111815

PATIENT
  Sex: Female
  Weight: 80 kg

DRUGS (2)
  1. DIOVAN HCT [Suspect]
     Active Substance: HYDROCHLOROTHIAZIDE\VALSARTAN
     Dosage: 2 IN MORNING AND 2 IN AFTERNOON (HYDROCHLOROTHIAZIDE 12.5 MG, VALSARTAN 160 MG)
     Route: 048
  2. DIOVAN HCT [Suspect]
     Active Substance: HYDROCHLOROTHIAZIDE\VALSARTAN
     Indication: HYPERTENSION
     Dosage: (HYDROCHLOROTHIAZIDE 12.5 MG, VALSARTAN 80 MG)
     Route: 065

REACTIONS (8)
  - Gait disturbance [Unknown]
  - Blood pressure increased [Recovering/Resolving]
  - Product prescribing error [Unknown]
  - Osteoarthritis [Unknown]
  - Inappropriate schedule of product administration [Unknown]
  - Urinary retention [Unknown]
  - Visual impairment [Recovering/Resolving]
  - Fatigue [Unknown]
